FAERS Safety Report 7225738-2 (Version None)
Quarter: 2011Q1

REPORT INFORMATION
  Report Type: 
  Country: None (occurrence: None)
  Receive Date: 20110113
  Receipt Date: 20110110
  Transmission Date: 20110831
  Serious: Yes (Other)
  Sender: FDA-Public Use
  Company Number: US-ABBOTT-11P-163-0696602-00

PATIENT
  Sex: Female
  Weight: 79.45 kg

DRUGS (20)
  1. CENTRUM SILVER [Concomitant]
     Indication: VITAMIN SUPPLEMENTATION
     Route: 048
  2. LOVAZA [Concomitant]
     Indication: PRODUCT USED FOR UNKNOWN INDICATION
     Route: 048
  3. VOLTAREN [Concomitant]
     Indication: OSTEOARTHRITIS
     Route: 061
  4. CYANOCOBALAMIN [Concomitant]
     Indication: VITAMIN SUPPLEMENTATION
     Dosage: NOT KNOWN
     Route: 048
  5. DESONIDE [Concomitant]
     Indication: LIP EXFOLIATION
     Route: 061
  6. FOLIC ACID [Concomitant]
     Indication: VITAMIN SUPPLEMENTATION
     Dosage: UNKNOWN STRENGTH
     Route: 048
  7. ASPIRIN [Concomitant]
     Indication: CARDIOVASCULAR EVENT PROPHYLAXIS
     Route: 048
  8. LOVASTATIN [Concomitant]
     Indication: BLOOD CHOLESTEROL INCREASED
     Dosage: UNKNOWN STRENGTH
     Route: 048
  9. VALIUM [Concomitant]
     Indication: ANXIETY
     Route: 048
  10. ASCORBIC ACID [Concomitant]
     Indication: VITAMIN SUPPLEMENTATION
     Route: 048
  11. PATANOL [Concomitant]
     Indication: DRY EYE
     Route: 047
  12. PLENDIL [Concomitant]
     Indication: HYPERTENSION
     Dosage: HS
     Route: 048
  13. DARVOCET-N 100 [Concomitant]
     Indication: PAIN
     Route: 048
  14. CALCIUM W/VITAMIN D [Concomitant]
     Indication: MINERAL SUPPLEMENTATION
     Dosage: 600/?
     Route: 048
  15. VOLTAREN [Concomitant]
     Indication: PAIN IN EXTREMITY
  16. COZAAR [Concomitant]
     Indication: HYPERTENSION
     Route: 048
  17. LASIX [Concomitant]
     Indication: DIURETIC THERAPY
     Route: 048
  18. HUMIRA [Suspect]
     Indication: PSORIATIC ARTHROPATHY
     Route: 058
     Dates: start: 20100201
  19. PLAQUENIL [Concomitant]
     Indication: PSORIATIC ARTHROPATHY
     Route: 048
  20. VITAMIN D [Concomitant]
     Indication: VITAMIN SUPPLEMENTATION
     Route: 048

REACTIONS (9)
  - ARTHRALGIA [None]
  - PAIN IN EXTREMITY [None]
  - POLYP [None]
  - ASTHENIA [None]
  - MUSCULAR WEAKNESS [None]
  - OSTEOARTHRITIS [None]
  - HAEMORRHOIDS [None]
  - TENDONITIS [None]
  - BREAST MASS [None]
